FAERS Safety Report 17279231 (Version 1)
Quarter: 2020Q1

REPORT INFORMATION
  Report Type: Spontaneous
  Country: DE (occurrence: DE)
  Receive Date: 20200116
  Receipt Date: 20200116
  Transmission Date: 20200409
  Serious: Yes (Other)
  Sender: FDA-Public Use
  Company Number: DE-BAYER-2020-006963

PATIENT
  Age: 35 Year
  Sex: Female
  Weight: 60 kg

DRUGS (2)
  1. MIRENA [Suspect]
     Active Substance: LEVONORGESTREL
     Dosage: 20 MCG/24HR, CONT
     Route: 015
     Dates: start: 20120424, end: 20170308
  2. MIRENA [Suspect]
     Active Substance: LEVONORGESTREL
     Dosage: 20 MCG/24HR, CONT
     Route: 015
     Dates: start: 20170308

REACTIONS (20)
  - Arrhythmia [None]
  - Aphasia [None]
  - Dysphagia [None]
  - Disturbance in attention [None]
  - Restlessness [None]
  - Headache [None]
  - Tinnitus [None]
  - Alopecia [None]
  - Progesterone decreased [Not Recovered/Not Resolved]
  - Amenorrhoea [None]
  - Sleep disorder [None]
  - Depressed mood [None]
  - Libido decreased [None]
  - Dizziness [None]
  - Arthralgia [None]
  - Malnutrition [Recovered/Resolved]
  - Migraine with aura [None]
  - Paraesthesia [None]
  - Irritability [None]
  - Hyperacusis [None]

NARRATIVE: CASE EVENT DATE: 20120424
